FAERS Safety Report 4598067-3 (Version None)
Quarter: 2005Q1

REPORT INFORMATION
  Report Type: 
  Country: None (occurrence: None)
  Receive Date: 20050304
  Receipt Date: 20050222
  Transmission Date: 20050727
  Serious: Yes (Other)
  Sender: FDA-Public Use
  Company Number: US-KINGPHARMUSA00001-K200500271

PATIENT
  Age: 49 Year
  Sex: Female
  Weight: 59 kg

DRUGS (7)
  1. LEVOXYL [Suspect]
     Indication: HYPOTHYROIDISM
     Dosage: 75 MCG, QD
     Route: 048
     Dates: start: 20041201
  2. LIPITOR [Concomitant]
     Indication: BLOOD CHOLESTEROL
     Route: 048
     Dates: start: 20040101
  3. AMITRIPTYLINE HCL [Concomitant]
     Route: 048
  4. GUAIFED [Concomitant]
     Dosage: UNK, PRN
     Route: 048
  5. HYDROCODONE BITARTRATE [Concomitant]
     Dosage: UNK, PRN
     Route: 048
  6. MULTIVITAMIN ^LAPPE^ [Concomitant]
     Route: 048
  7. ORTHO-NOVUM [Concomitant]
     Dosage: UNK, UNK
     Route: 048

REACTIONS (2)
  - FOREIGN BODY TRAUMA [None]
  - PHARMACEUTICAL PRODUCT COMPLAINT [None]
